FAERS Safety Report 5924687-7 (Version None)
Quarter: 2008Q4

REPORT INFORMATION
  Report Type: 
  Country: None (occurrence: None)
  Receive Date: 20081015
  Receipt Date: 20080929
  Transmission Date: 20090506
  Serious: Yes (Hospitalization)
  Sender: FDA-Public Use
  Company Number: RENA-12357

PATIENT
  Age: 64 Year
  Sex: Female
  Weight: 36 kg

DRUGS (14)
  1. RENAGEL [Suspect]
     Indication: HYPERPHOSPHATAEMIA
     Dosage: 1.0 G, TID, ORAL;1.5 G, TID,ORAL; 2.0 G, TID, ORAL;  1.5 G, TID;  0.5 G, TID ORAL;  0.75 G, TID,ORAL
     Route: 048
     Dates: start: 20030708, end: 20031103
  2. RENAGEL [Suspect]
     Indication: HYPERPHOSPHATAEMIA
     Dosage: 1.0 G, TID, ORAL;1.5 G, TID,ORAL; 2.0 G, TID, ORAL;  1.5 G, TID;  0.5 G, TID ORAL;  0.75 G, TID,ORAL
     Route: 048
     Dates: start: 20031104, end: 20040510
  3. RENAGEL [Suspect]
     Indication: HYPERPHOSPHATAEMIA
     Dosage: 1.0 G, TID, ORAL;1.5 G, TID,ORAL; 2.0 G, TID, ORAL;  1.5 G, TID;  0.5 G, TID ORAL;  0.75 G, TID,ORAL
     Route: 048
     Dates: start: 20040511, end: 20050404
  4. RENAGEL [Suspect]
     Indication: HYPERPHOSPHATAEMIA
     Dosage: 1.0 G, TID, ORAL;1.5 G, TID,ORAL; 2.0 G, TID, ORAL;  1.5 G, TID;  0.5 G, TID ORAL;  0.75 G, TID,ORAL
     Route: 048
     Dates: start: 20050405, end: 20050725
  5. RENAGEL [Suspect]
     Indication: HYPERPHOSPHATAEMIA
     Dosage: 1.0 G, TID, ORAL;1.5 G, TID,ORAL; 2.0 G, TID, ORAL;  1.5 G, TID;  0.5 G, TID ORAL;  0.75 G, TID,ORAL
     Route: 048
     Dates: start: 20050726, end: 20051024
  6. RENAGEL [Suspect]
     Indication: HYPERPHOSPHATAEMIA
     Dosage: 1.0 G, TID, ORAL;1.5 G, TID,ORAL; 2.0 G, TID, ORAL;  1.5 G, TID;  0.5 G, TID ORAL;  0.75 G, TID,ORAL
     Route: 048
     Dates: start: 20051025, end: 20060501
  7. RENAGEL [Suspect]
     Indication: HYPERPHOSPHATAEMIA
     Dosage: 1.0 G, TID, ORAL;1.5 G, TID,ORAL; 2.0 G, TID, ORAL;  1.5 G, TID;  0.5 G, TID ORAL;  0.75 G, TID,ORAL
     Route: 048
     Dates: start: 20060502, end: 20060920
  8. CALTAN (CALCIUM CARBONATE) TAB [Concomitant]
  9. WARFARIN SODIUM [Concomitant]
  10. AMLODIPINE BESYLATE [Concomitant]
  11. FULSTAN (FALECALCITRIOL) [Concomitant]
  12. FAMOTIDINE [Concomitant]
  13. KEISHIBUKURYQUGAN (HERBAL EXTRACT NOS) GRANULES [Concomitant]
  14. ROCALTROL (CALCITRIOL) INJECTION [Concomitant]

REACTIONS (4)
  - DIVERTICULITIS [None]
  - HYPERVENTILATION [None]
  - ILEITIS [None]
  - METABOLIC ACIDOSIS [None]
